FAERS Safety Report 4475450-8 (Version None)
Quarter: 2004Q4

REPORT INFORMATION
  Report Type: 
  Country: None (occurrence: None)
  Receive Date: 20041015
  Receipt Date: 20040923
  Transmission Date: 20050328
  Serious: Yes (Hospitalization, Disabling)
  Sender: FDA-Public Use
  Company Number: US-ROCHE-381462

PATIENT
  Age: 37 Year
  Sex: Female
  Weight: 97.1 kg

DRUGS (8)
  1. FUZEON [Suspect]
     Route: 058
     Dates: start: 20040101
  2. INVIRASE [Suspect]
     Route: 048
     Dates: start: 20040206
  3. ZERIT [Suspect]
     Route: 048
     Dates: start: 20030123
  4. KALETRA [Suspect]
     Route: 048
     Dates: start: 20030123
  5. BACTRIM DS [Concomitant]
     Dosage: TAKEN DAILY.
     Route: 048
     Dates: start: 20030123
  6. LORAZEPAM [Concomitant]
     Indication: HIV INFECTION
     Route: 048
  7. DILANTIN [Concomitant]
     Indication: EPILEPSY
     Route: 048
     Dates: end: 20040915
  8. NEURONTIN [Concomitant]
     Indication: EPILEPSY
     Route: 048
     Dates: end: 20040915

REACTIONS (3)
  - CONVULSION [None]
  - INJECTION SITE OEDEMA [None]
  - LOSS OF CONSCIOUSNESS [None]
